FAERS Safety Report 6063875-9 (Version None)
Quarter: 2009Q1

REPORT INFORMATION
  Report Type: 
  Country: None (occurrence: None)
  Receive Date: 20090204
  Receipt Date: 20090123
  Transmission Date: 20090719
  Serious: Yes (Hospitalization)
  Sender: FDA-Public Use
  Company Number: FR-AVENTIS-200910246FR

PATIENT
  Age: 36 Year
  Sex: Female

DRUGS (3)
  1. BIRODOGYL [Suspect]
     Route: 048
     Dates: start: 20081118, end: 20081122
  2. EFFEXOR [Concomitant]
  3. PRAZEPAM [Concomitant]

REACTIONS (2)
  - NEUROPATHY PERIPHERAL [None]
  - PARAESTHESIA [None]
